FAERS Safety Report 21336649 (Version 2)
Quarter: 2022Q4

REPORT INFORMATION
  Report Type: Report from Study
  Country: CA (occurrence: CA)
  Receive Date: 20220915
  Receipt Date: 20221003
  Transmission Date: 20230112
  Serious: Yes (Hospitalization, Other)
  Sender: FDA-Public Use
  Company Number: CA-NOVARTISPH-NVSC2022CA176407

PATIENT
  Age: 48 Year
  Sex: Female

DRUGS (4)
  1. KESIMPTA [Suspect]
     Active Substance: OFATUMUMAB
     Indication: Relapsing-remitting multiple sclerosis
     Dosage: UNK
     Route: 058
     Dates: start: 20211216
  2. KESIMPTA [Suspect]
     Active Substance: OFATUMUMAB
     Dosage: UNK
     Route: 058
     Dates: start: 20220215
  3. VOLTAREN [Concomitant]
     Active Substance: DICLOFENAC SODIUM
     Indication: Arthralgia
     Dosage: UNK
     Route: 065
  4. CAT^S CLAW [Concomitant]
     Active Substance: CAT^S CLAW
     Indication: Product used for unknown indication
     Dosage: UNK
     Route: 065

REACTIONS (19)
  - Depression [Unknown]
  - Multiple sclerosis relapse [Unknown]
  - Gait disturbance [Recovering/Resolving]
  - Limb discomfort [Recovering/Resolving]
  - Hypoaesthesia [Unknown]
  - Muscle spasticity [Recovering/Resolving]
  - Malaise [Unknown]
  - Dizziness [Not Recovered/Not Resolved]
  - Nausea [Unknown]
  - Vertigo [Recovered/Resolved]
  - Tinnitus [Unknown]
  - Meniere^s disease [Unknown]
  - Muscular weakness [Recovering/Resolving]
  - Burning sensation [Unknown]
  - Headache [Unknown]
  - Head discomfort [Unknown]
  - Skin lesion [Unknown]
  - Nervous system disorder [Unknown]
  - Dry eye [Unknown]

NARRATIVE: CASE EVENT DATE: 20220129
